FAERS Safety Report 4613812-6 (Version None)
Quarter: 2005Q1

REPORT INFORMATION
  Report Type: 
  Country: None (occurrence: None)
  Receive Date: 20050315
  Receipt Date: 20020531
  Transmission Date: 20050727
  Serious: Yes (Hospitalization)
  Sender: FDA-Public Use
  Company Number: 3779

PATIENT
  Age: 68 Year
  Sex: Female

DRUGS (3)
  1. CARBOPLATIN [Suspect]
     Indication: LUNG NEOPLASM MALIGNANT
     Dosage: 500 MG ONCE
     Dates: start: 20001228, end: 20001228
  2. VINCRISTINE [Suspect]
     Indication: LUNG NEOPLASM MALIGNANT
     Dosage: 2 MG ONCE
     Dates: start: 20001228, end: 20001228
  3. ETOPOSIDE [Suspect]
     Indication: LUNG NEOPLASM MALIGNANT
     Dosage: 200 MG ONCE
     Dates: start: 20001228, end: 20001228

REACTIONS (1)
  - PANCYTOPENIA [None]
